FAERS Safety Report 23076681 (Version 1)
Quarter: 2023Q4

REPORT INFORMATION
  Report Type: Spontaneous
  Country: JP (occurrence: JP)
  Receive Date: 20231017
  Receipt Date: 20231017
  Transmission Date: 20240109
  Serious: Yes (Other)
  Sender: FDA-Public Use
  Company Number: JP-SAKK-2023SA307017AA

PATIENT
  Sex: Female

DRUGS (1)
  1. KEVZARA [Suspect]
     Active Substance: SARILUMAB
     Indication: Product used for unknown indication
     Dosage: UNK
     Route: 058

REACTIONS (15)
  - Polymyalgia rheumatica [Unknown]
  - Cataract [Unknown]
  - Physical deconditioning [Unknown]
  - Oral mucosal roughening [Unknown]
  - Mouth injury [Unknown]
  - Oral pain [Unknown]
  - Condition aggravated [Unknown]
  - Tonsillar hypertrophy [Unknown]
  - Condition aggravated [Unknown]
  - Lip erosion [Unknown]
  - Pain in jaw [Unknown]
  - Condition aggravated [Unknown]
  - Lip swelling [Unknown]
  - Lip pain [Unknown]
  - Condition aggravated [Unknown]
